FAERS Safety Report 5800353-3 (Version None)
Quarter: 2008Q3

REPORT INFORMATION
  Report Type: 
  Country: None (occurrence: None)
  Receive Date: 20080702
  Receipt Date: 20080702
  Transmission Date: 20090109
  Serious: Yes (Hospitalization, Other)
  Sender: FDA-Public Use
  Company Number: None

PATIENT
  Sex: Female
  Weight: 86 kg

DRUGS (1)
  1. ALDARA [Suspect]
     Indication: BASAL CELL CARCINOMA
     Dosage: 5 DAYS A WEEK TOP
     Route: 061

REACTIONS (26)
  - ANORECTAL DISCOMFORT [None]
  - CARPAL TUNNEL SYNDROME [None]
  - DRUG HYPERSENSITIVITY [None]
  - ECZEMA [None]
  - ENTEROCOCCAL INFECTION [None]
  - ERYTHEMA [None]
  - FATIGUE [None]
  - FEELING ABNORMAL [None]
  - FEELING HOT [None]
  - GENITAL BURNING SENSATION [None]
  - GROIN PAIN [None]
  - HYPERTENSION [None]
  - ILL-DEFINED DISORDER [None]
  - INCREASED BRONCHIAL SECRETION [None]
  - LOWER RESPIRATORY TRACT INFECTION [None]
  - PALPITATIONS [None]
  - PRURITUS [None]
  - RASH ERYTHEMATOUS [None]
  - RESPIRATORY DISORDER [None]
  - SERRATIA INFECTION [None]
  - SKIN INJURY [None]
  - SKIN PAPILLOMA [None]
  - TINNITUS [None]
  - URTICARIA [None]
  - VISUAL ACUITY REDUCED [None]
  - VULVOVAGINAL PRURITUS [None]
